FAERS Safety Report 6130615-4 (Version None)
Quarter: 2009Q1

REPORT INFORMATION
  Report Type: 
  Country: None (occurrence: None)
  Receive Date: 20090325
  Receipt Date: 20090316
  Transmission Date: 20090719
  Serious: Yes (Hospitalization)
  Sender: FDA-Public Use
  Company Number: PHHY2009US09970

PATIENT
  Sex: Male

DRUGS (2)
  1. GLEEVEC [Suspect]
     Indication: MALIGNANT SOFT TISSUE NEOPLASM
     Dosage: 400 MG DAILY
     Route: 048
     Dates: start: 20090224
  2. GLEEVEC [Suspect]
     Dosage: UNK
     Route: 048
     Dates: start: 20090316

REACTIONS (3)
  - HYPOTENSION [None]
  - SHOCK [None]
  - WHITE BLOOD CELL COUNT INCREASED [None]
